FAERS Safety Report 15319151 (Version 1)
Quarter: 2018Q3

REPORT INFORMATION
  Report Type: Spontaneous
  Country: US (occurrence: US)
  Receive Date: 20180820
  Receipt Date: 20180820
  Transmission Date: 20181010
  Serious: Yes (Disabling)
  Sender: FDA-Public Use
  Company Number: None

PATIENT
  Age: 51 Year
  Sex: Female
  Weight: 62.55 kg

DRUGS (7)
  1. LEVOTHYROXINE. [Concomitant]
     Active Substance: LEVOTHYROXINE
  2. MULTIVITAMIN GUMMIES [Concomitant]
  3. METFORMIN/GLYBURIDE [Suspect]
     Active Substance: GLYBURIDE\METFORMIN
     Indication: DIABETES MELLITUS
     Route: 048
  4. INSULIN [Concomitant]
     Active Substance: INSULIN NOS
  5. GABAPENTIN. [Concomitant]
     Active Substance: GABAPENTIN
  6. QUNOL COQ10 [Concomitant]
  7. CITALOPRAM [Concomitant]
     Active Substance: CITALOPRAM HYDROBROMIDE

REACTIONS (18)
  - Dizziness [None]
  - Hypoaesthesia [None]
  - Pain in extremity [None]
  - Blood pressure inadequately controlled [None]
  - Fatigue [None]
  - Breast pain [None]
  - Decreased appetite [None]
  - Disturbance in attention [None]
  - Abdominal pain upper [None]
  - Therapy change [None]
  - Feeling cold [None]
  - Blood glucose increased [None]
  - Syncope [None]
  - Muscle atrophy [None]
  - Confusional state [None]
  - Loss of personal independence in daily activities [None]
  - Asthenia [None]
  - Fall [None]

NARRATIVE: CASE EVENT DATE: 20180515
